FAERS Safety Report 7656334-0 (Version None)
Quarter: 2011Q3

REPORT INFORMATION
  Report Type: 
  Country: None (occurrence: None)
  Receive Date: 20110804
  Receipt Date: 20110727
  Transmission Date: 20111222
  Serious: Yes (Disabling)
  Sender: FDA-Public Use
  Company Number: US-ROCHE-794420

PATIENT
  Sex: Female
  Weight: 51.8 kg

DRUGS (1)
  1. BEVACIZUMAB [Suspect]
     Dosage: 7.5 MG/KG, Q3W
     Route: 042
     Dates: start: 20090130

REACTIONS (1)
  - NEPHROPATHY TOXIC [None]
